FAERS Safety Report 8418980-6 (Version None)
Quarter: 2012Q2

REPORT INFORMATION
  Report Type: 
  Country: None (occurrence: None)
  Receive Date: 20120607
  Receipt Date: 20120601
  Transmission Date: 20120825
  Serious: Yes (Hospitalization)
  Sender: FDA-Public Use
  Company Number: PHHO2012US008386

PATIENT
  Age: 49 Year
  Sex: Female
  Weight: 70.5 kg

DRUGS (1)
  1. AFINITOR [Suspect]
     Indication: WALDENSTROM'S MACROGLOBULINAEMIA
     Dosage: 5 MG, UNK
     Route: 048
     Dates: start: 20110218, end: 20120504

REACTIONS (3)
  - HAEMOLYTIC URAEMIC SYNDROME [None]
  - HAEMORRHAGE INTRACRANIAL [None]
  - THROMBOTIC THROMBOCYTOPENIC PURPURA [None]
